FAERS Safety Report 8811106 (Version 1)
Quarter: 2012Q4

REPORT INFORMATION
  Report Type: 
  Country: JP (occurrence: JP)
  Receive Date: 20120927
  Receipt Date: 20120927
  Transmission Date: 20130627
  Serious: Yes (Other)
  Sender: FDA-Public Use
  Company Number: JP-009507513-1208JPN009412

PATIENT
  Age: 57 Year
  Sex: Female

DRUGS (3)
  1. LIPOVAS [Suspect]
     Indication: HYPERCHOLESTEROLAEMIA
     Dosage: 5 mg, qd
     Route: 048
     Dates: start: 20120804, end: 20120808
  2. LIPITOR [Suspect]
     Indication: HYPERCHOLESTEROLAEMIA
     Dosage: 5 mg,qd
     Dates: start: 20120809
  3. NORVASC [Concomitant]
     Indication: HYPERTENSION
     Dosage: 2.5 mg, qd
     Route: 048
     Dates: start: 20100920

REACTIONS (2)
  - Bile duct cancer [Not Recovered/Not Resolved]
  - Rash [Unknown]
